FAERS Safety Report 14385420 (Version 2)
Quarter: 2018Q1

REPORT INFORMATION
  Report Type: Spontaneous
  Country: US (occurrence: US)
  Receive Date: 20180115
  Receipt Date: 20180115
  Transmission Date: 20180509
  Serious: Yes (Other)
  Sender: FDA-Public Use
  Company Number: US-SA-2016SA232662

PATIENT
  Age: 37 Year
  Sex: Female
  Weight: 86.18 kg

DRUGS (8)
  1. TAXOTERE [Suspect]
     Active Substance: DOCETAXEL
     Indication: BREAST CANCER
     Dosage: 140 MG/180 MG
     Route: 051
     Dates: start: 20070628, end: 20070628
  2. DOXIL [Concomitant]
     Active Substance: DOXORUBICIN HYDROCHLORIDE
  3. OXYCODONE [Concomitant]
     Active Substance: OXYCODONE
  4. XANAX [Concomitant]
     Active Substance: ALPRAZOLAM
  5. NEOSAR [Concomitant]
     Active Substance: CYCLOPHOSPHAMIDE
  6. ADRIAMYCIN [Concomitant]
     Active Substance: DOXORUBICIN HYDROCHLORIDE
  7. TAXOTERE [Suspect]
     Active Substance: DOCETAXEL
     Indication: BREAST CANCER
     Dosage: 140 MG/180 MG
     Route: 051
     Dates: start: 20070427, end: 20070427
  8. SOMA [Concomitant]
     Active Substance: CARISOPRODOL

REACTIONS (5)
  - Impaired quality of life [Unknown]
  - Emotional distress [Unknown]
  - Alopecia [Not Recovered/Not Resolved]
  - Psychological trauma [Unknown]
  - Anxiety [Unknown]

NARRATIVE: CASE EVENT DATE: 200704
